FAERS Safety Report 10196443 (Version 1)
Quarter: 2014Q2

REPORT INFORMATION
  Report Type: Spontaneous
  Country: US (occurrence: US)
  Receive Date: 20140527
  Receipt Date: 20140527
  Transmission Date: 20141212
  Serious: No
  Sender: FDA-Public Use
  Company Number: US-BAYER-2014-073334

PATIENT
  Age: 19 Year
  Sex: Female

DRUGS (2)
  1. GIANVI [Suspect]
     Dosage: UNK
     Route: 048
     Dates: start: 201403
  2. AMOXICILLIN [Concomitant]

REACTIONS (3)
  - Mononucleosis syndrome [None]
  - Inappropriate schedule of drug administration [None]
  - Metrorrhagia [None]
